FAERS Safety Report 25753025 (Version 1)
Quarter: 2025Q3

REPORT INFORMATION
  Report Type: Spontaneous
  Country: US (occurrence: US)
  Receive Date: 20250902
  Receipt Date: 20250902
  Transmission Date: 20251021
  Serious: No
  Sender: AMGEN
  Company Number: US-AMGEN-USASP2025171433

PATIENT

DRUGS (1)
  1. REPATHA [Suspect]
     Active Substance: EVOLOCUMAB
     Indication: Product used for unknown indication
     Route: 065

REACTIONS (6)
  - Pain in extremity [Unknown]
  - Weight increased [Unknown]
  - Thirst [Unknown]
  - Hunger [Unknown]
  - Low density lipoprotein increased [Unknown]
  - Feeling abnormal [Unknown]
